FAERS Safety Report 21311295 (Version 1)
Quarter: 2022Q3

REPORT INFORMATION
  Report Type: Spontaneous
  Country: US (occurrence: None)
  Receive Date: 20220908
  Receipt Date: 20220908
  Transmission Date: 20221026
  Serious: Yes (Hospitalization)
  Sender: FDA-Public Use
  Company Number: None

PATIENT
  Sex: Female

DRUGS (17)
  1. NUCALA [Suspect]
     Active Substance: MEPOLIZUMAB
  2. AMLODIPINE TAB [Concomitant]
  3. ATORVASTATIN [Concomitant]
     Active Substance: ATORVASTATIN
  4. CITALOPRAM TAB [Concomitant]
  5. CITALOPRAM TAB [Concomitant]
  6. EUTHYROX TAB [Concomitant]
  7. JANUVIA TAB [Concomitant]
  8. LISINOPRIL [Concomitant]
     Active Substance: LISINOPRIL
  9. METFORMIN TAB [Concomitant]
  10. MIRTAZAPINE TAB [Concomitant]
  11. MONTELUKAST SODIUM [Concomitant]
     Active Substance: MONTELUKAST SODIUM
  12. NYSTATAIN SUS [Concomitant]
  13. PANTOPRAZOLE TAB [Concomitant]
  14. PREDNISONE [Concomitant]
     Active Substance: PREDNISONE
  15. ROSUVASTATIN [Concomitant]
     Active Substance: ROSUVASTATIN
  16. SUCRALFATE TAB [Concomitant]
  17. TRIAMCINOLON OIN [Concomitant]

REACTIONS (2)
  - Diverticulitis [None]
  - Asthma [None]
